FAERS Safety Report 14479373 (Version 1)
Quarter: 2018Q1

REPORT INFORMATION
  Report Type: Spontaneous
  Country: US (occurrence: US)
  Receive Date: 20180202
  Receipt Date: 20180202
  Transmission Date: 20180509
  Serious: No
  Sender: FDA-Public Use
  Company Number: US-SHIRE-US201803236

PATIENT
  Age: 54 Year
  Sex: Female

DRUGS (1)
  1. GAMMAGARD [Suspect]
     Active Substance: HUMAN IMMUNOGLOBULIN G
     Indication: IMMUNODEFICIENCY COMMON VARIABLE
     Dosage: UNK, 1X A MONTH
     Route: 042
     Dates: start: 2012

REACTIONS (2)
  - Drug screen positive [Not Recovered/Not Resolved]
  - Influenza like illness [Recovered/Resolved]

NARRATIVE: CASE EVENT DATE: 2012
